FAERS Safety Report 17564790 (Version 1)
Quarter: 2020Q1

REPORT INFORMATION
  Report Type: Spontaneous
  Country: NZ (occurrence: NZ)
  Receive Date: 20200320
  Receipt Date: 20200320
  Transmission Date: 20200409
  Serious: Yes (Hospitalization, Other)
  Sender: FDA-Public Use
  Company Number: NZ-ABBVIE-20K-118-3328745-00

PATIENT
  Age: 62 Year
  Sex: Male

DRUGS (2)
  1. HUMIRA [Suspect]
     Active Substance: ADALIMUMAB
     Indication: PRODUCT USED FOR UNKNOWN INDICATION
     Route: 058
  2. HUMIRA [Suspect]
     Active Substance: ADALIMUMAB
     Route: 058

REACTIONS (6)
  - Musculoskeletal stiffness [Unknown]
  - Back disorder [Unknown]
  - Unevaluable event [Unknown]
  - Oropharyngeal pain [Unknown]
  - Surgery [Unknown]
  - Headache [Unknown]

NARRATIVE: CASE EVENT DATE: 2019
